FAERS Safety Report 5354573-5 (Version None)
Quarter: 2007Q2

REPORT INFORMATION
  Report Type: 
  Country: None (occurrence: None)
  Receive Date: 20070611
  Receipt Date: 20070530
  Transmission Date: 20071010
  Serious: Yes (Other)
  Sender: FDA-Public Use
  Company Number: 2007JP002497

PATIENT
  Age: 4 Month
  Sex: Male

DRUGS (7)
  1. PROGRAF [Suspect]
     Indication: STEM CELL TRANSPLANT
  2. METHOTREXATE [Concomitant]
  3. SULFAMETHOXAZOLE AND TRIMETHOPRIM [Concomitant]
  4. TEICOPLANIN [Concomitant]
  5. MEROPENEM (MEROPENEM) [Concomitant]
  6. FLUCONAZOLE [Concomitant]
  7. FUNGUARD (MICAFUNGIN) [Concomitant]

REACTIONS (6)
  - BRONCHITIS MORAXELLA [None]
  - GRAFT VERSUS HOST DISEASE [None]
  - HYPERBILIRUBINAEMIA [None]
  - LEUKOCYTOSIS [None]
  - PERICARDITIS FUNGAL [None]
  - RASH [None]
